FAERS Safety Report 7134732-1 (Version None)
Quarter: 2010Q4

REPORT INFORMATION
  Report Type: 
  Country: None (occurrence: None)
  Receive Date: 20101130
  Receipt Date: 20101130
  Transmission Date: 20110411
  Serious: Yes (Hospitalization)
  Sender: FDA-Public Use
  Company Number: None

PATIENT
  Sex: Male
  Weight: 93 kg

DRUGS (2)
  1. AZACITIDINE [Suspect]
     Dosage: 75 MG/M2 QD IV
     Route: 042
  2. REVLIMID [Suspect]
     Dosage: 50 MG, QD, PO
     Route: 048

REACTIONS (1)
  - ABDOMINAL PAIN [None]
